FAERS Safety Report 24182585 (Version 1)
Quarter: 2024Q3

REPORT INFORMATION
  Report Type: Spontaneous
  Country: IN (occurrence: IN)
  Receive Date: 20240807
  Receipt Date: 20240807
  Transmission Date: 20241017
  Serious: Yes (Other)
  Sender: SHILPA MEDICARE
  Company Number: IN-KOANAAP-SML-IN-2024-00785

PATIENT
  Age: 60 Year
  Sex: Male

DRUGS (1)
  1. IMATINIB [Suspect]
     Active Substance: IMATINIB
     Indication: Chronic myeloid leukaemia

REACTIONS (5)
  - Haemosiderosis [Unknown]
  - Skin discolouration [Unknown]
  - Abdominal distension [Unknown]
  - Oedema peripheral [Unknown]
  - Hepatotoxicity [Unknown]
